FAERS Safety Report 15129495 (Version 2)
Quarter: 2018Q3

REPORT INFORMATION
  Report Type: Report from Study
  Country: US (occurrence: US)
  Receive Date: 20180711
  Receipt Date: 20180813
  Transmission Date: 20181010
  Serious: Yes (Other)
  Sender: FDA-Public Use
  Company Number: US-TESARO, INC-US-2018TSO03024

PATIENT
  Age: 77 Year
  Sex: Female

DRUGS (3)
  1. ZEJULA [Suspect]
     Active Substance: NIRAPARIB
     Dosage: 300 MG, QD
     Route: 048
     Dates: start: 20180601, end: 20180626
  2. ZEJULA [Suspect]
     Active Substance: NIRAPARIB
     Indication: OVARIAN CANCER
     Dosage: 300 MG, QD
     Route: 048
     Dates: start: 20180529, end: 20180626
  3. ZEJULA [Suspect]
     Active Substance: NIRAPARIB
     Dosage: 100 MG, QD
     Route: 048
     Dates: start: 20180719

REACTIONS (13)
  - Bacteriuria [Unknown]
  - Feeling abnormal [Unknown]
  - Dry mouth [Recovering/Resolving]
  - Platelet count decreased [Recovered/Resolved]
  - Contusion [Not Recovered/Not Resolved]
  - White blood cell count decreased [Recovered/Resolved]
  - Stomatitis [Not Recovered/Not Resolved]
  - Asthenia [Recovering/Resolving]
  - Stent placement [Not Recovered/Not Resolved]
  - Blood pressure increased [Recovered/Resolved]
  - Blood pressure decreased [Recovering/Resolving]
  - Constipation [Not Recovered/Not Resolved]
  - Fatigue [Recovering/Resolving]

NARRATIVE: CASE EVENT DATE: 20180606
